FAERS Safety Report 7744443-7 (Version None)
Quarter: 2011Q3

REPORT INFORMATION
  Report Type: 
  Country: None (occurrence: None)
  Receive Date: 20110912
  Receipt Date: 20110907
  Transmission Date: 20111222
  Serious: Yes (Hospitalization, Other)
  Sender: FDA-Public Use
  Company Number: US-ABBOTT-11P-163-0843372-00

PATIENT
  Sex: Female

DRUGS (9)
  1. HYDRALAZINE HCL [Concomitant]
     Indication: RENAL FAILURE
     Route: 048
  2. CLONIDINE [Concomitant]
     Indication: HYPERTENSION
  3. CAPTOPRIL [Concomitant]
     Indication: HYPERTENSION
  4. CLONIDINE [Concomitant]
     Indication: RENAL FAILURE
     Route: 048
  5. HUMIRA [Suspect]
     Indication: RHEUMATOID ARTHRITIS
     Dates: start: 20110601
  6. NIFEDIPINE [Concomitant]
     Indication: HYPERTENSION
  7. HYDRALAZINE HCL [Concomitant]
     Indication: HYPERTENSION
  8. NIFEDIPINE [Concomitant]
     Indication: RENAL FAILURE
     Route: 048
  9. CAPTOPRIL [Concomitant]
     Indication: RENAL FAILURE
     Route: 048

REACTIONS (2)
  - SCLERODERMA RENAL CRISIS [None]
  - RENAL FAILURE [None]
